FAERS Safety Report 20733105 (Version 5)
Quarter: 2022Q3

REPORT INFORMATION
  Report Type: Report from Study
  Country: DE (occurrence: DE)
  Receive Date: 20220421
  Receipt Date: 20220809
  Transmission Date: 20221027
  Serious: Yes (Hospitalization)
  Sender: FDA-Public Use
  Company Number: DE-IPSEN Group, Research and Development-2022-07357

PATIENT
  Age: 82 Year
  Sex: Male
  Weight: 70 kg

DRUGS (10)
  1. NIVOLUMAB [Suspect]
     Active Substance: NIVOLUMAB
     Indication: Renal cell carcinoma
     Route: 042
     Dates: start: 20220302, end: 20220302
  2. CABOZANTINIB [Suspect]
     Active Substance: CABOZANTINIB
     Indication: Renal cell carcinoma
     Dosage: 20 MG, DAILY
     Route: 048
     Dates: start: 20220427, end: 20220524
  3. CABOZANTINIB [Suspect]
     Active Substance: CABOZANTINIB
     Indication: Renal cell carcinoma
     Dosage: 40 MG, DAILY
     Route: 048
     Dates: start: 20220210, end: 20220314
  4. CABOZANTINIB [Suspect]
     Active Substance: CABOZANTINIB
     Dosage: UNKNOWN, DAILY
     Route: 048
     Dates: start: 20220314
  5. ELIQUIS [Concomitant]
     Active Substance: APIXABAN
     Indication: Arrhythmia supraventricular
     Route: 048
     Dates: start: 20220610
  6. MARCUMAR [Concomitant]
     Active Substance: PHENPROCOUMON
     Indication: Arrhythmia supraventricular
     Route: 048
     Dates: start: 20000101
  7. BENZTHIAZIDE\TRIAMTERENE [Concomitant]
     Active Substance: BENZTHIAZIDE\TRIAMTERENE
     Indication: Diuretic therapy
     Route: 048
  8. AMOXICILLIN\CLAVULANATE POTASSIUM [Concomitant]
     Active Substance: AMOXICILLIN\CLAVULANATE POTASSIUM
     Indication: Antibiotic therapy
     Dosage: 500 MG, BID - TWICE PER DAY
     Route: 048
     Dates: start: 20220610, end: 20220615
  9. ISOPTIN [Concomitant]
     Active Substance: VERAPAMIL HYDROCHLORIDE
     Indication: Arrhythmia
     Route: 065
  10. L-THROXIN [Concomitant]
     Indication: Hypothyroidism
     Route: 048

REACTIONS (6)
  - Cough [Not Recovered/Not Resolved]
  - Chills [Recovered/Resolved]
  - General physical health deterioration [Recovered/Resolved]
  - Proctalgia [Recovered/Resolved]
  - Oral pain [Recovered/Resolved]
  - Prescribed underdose [Unknown]

NARRATIVE: CASE EVENT DATE: 20220314
